FAERS Safety Report 17224201 (Version 4)
Quarter: 2020Q1

REPORT INFORMATION
  Report Type: Report from Study
  Country: US (occurrence: US)
  Receive Date: 20200102
  Receipt Date: 20200221
  Transmission Date: 20200409
  Serious: Yes (Hospitalization, Other)
  Sender: FDA-Public Use
  Company Number: US-MYLANLABS-2019M1132582

PATIENT
  Sex: Female

DRUGS (7)
  1. AMNESTEEM [Suspect]
     Active Substance: ISOTRETINOIN
     Indication: PRODUCT USED FOR UNKNOWN INDICATION
     Dosage: UNK UNK, BID
     Dates: start: 20190530, end: 20191123
  2. LEXAPRO [Concomitant]
     Active Substance: ESCITALOPRAM OXALATE
     Indication: PRODUCT USED FOR UNKNOWN INDICATION
     Dosage: 10 MILLIGRAM
  3. AMNESTEEM [Suspect]
     Active Substance: ISOTRETINOIN
     Dosage: UNK UNK, BID
     Dates: start: 20190805
  4. AMNESTEEM [Suspect]
     Active Substance: ISOTRETINOIN
     Dosage: UNK UNK, BID
     Dates: start: 20190702
  5. AMNESTEEM [Suspect]
     Active Substance: ISOTRETINOIN
     Dosage: UNK UNK, BID
     Dates: start: 20191017
  6. AMNESTEEM [Suspect]
     Active Substance: ISOTRETINOIN
     Dosage: UNK UNK, BID
     Dates: start: 20190911
  7. AMNESTEEM [Suspect]
     Active Substance: ISOTRETINOIN
     Dosage: UNK UNK, BID
     Dates: end: 20191130

REACTIONS (2)
  - Type 2 diabetes mellitus [Not Recovered/Not Resolved]
  - Exposure during pregnancy [Unknown]
